FAERS Safety Report 4354391-0 (Version None)
Quarter: 2004Q2

REPORT INFORMATION
  Report Type: 
  Country: None (occurrence: None)
  Receive Date: 20040403
  Receipt Date: 20040427
  Transmission Date: 20050107
  Serious: Yes (Life-Threatening)
  Sender: FDA-Public Use
  Company Number: 200411507GDS

PATIENT
  Age: 17 Year
  Sex: Female
  Weight: 48 kg

DRUGS (6)
  1. AVELOX [Suspect]
     Indication: PNEUMONIA
     Dosage: 400 MG, TOTAL DAILY, INTRAVENOUS
     Route: 042
     Dates: start: 20040413
  2. MESTINON [Concomitant]
  3. BERODUAL [Concomitant]
  4. CHLORAMPHENICOL [Concomitant]
  5. RANITIDINE [Concomitant]
  6. CEFTRIAXONE [Concomitant]

REACTIONS (3)
  - HYPOVENTILATION [None]
  - RASH [None]
  - TACHYCARDIA [None]
